FAERS Safety Report 24804179 (Version 1)
Quarter: 2025Q1

REPORT INFORMATION
  Report Type: Spontaneous
  Country: US (occurrence: US)
  Receive Date: 20250103
  Receipt Date: 20250103
  Transmission Date: 20250408
  Serious: No
  Sender: ITALFARMACO SPA
  Company Number: US-ITALFARMACO SPA-2168221

PATIENT
  Age: 9 Year
  Sex: Male
  Weight: 41.73 kg

DRUGS (1)
  1. DUVYZAT [Suspect]
     Active Substance: GIVINOSTAT
     Indication: Duchenne muscular dystrophy
     Dates: start: 20241007

REACTIONS (4)
  - Blood triglycerides increased [Unknown]
  - Product dose omission issue [Unknown]
  - Low density lipoprotein abnormal [Unknown]
  - Blood cholesterol abnormal [Unknown]
